FAERS Safety Report 6791282-X (Version None)
Quarter: 2010Q2

REPORT INFORMATION
  Report Type: 
  Country: None (occurrence: None)
  Receive Date: 20100624
  Receipt Date: 20100618
  Transmission Date: 20101027
  Serious: Yes (Other)
  Sender: FDA-Public Use
  Company Number: AT-AMGEN-KDC415968

PATIENT
  Sex: Female

DRUGS (5)
  1. DENOSUMAB [Suspect]
     Indication: METASTASES TO BONE
     Dates: start: 20090722, end: 20100225
  2. PREDNISOLONE [Concomitant]
     Dates: start: 20081006
  3. AVASTIN [Concomitant]
     Dates: start: 20100225
  4. TAXOTERE [Concomitant]
  5. ACETYLSALICYLIC ACID [Concomitant]

REACTIONS (1)
  - OSTEONECROSIS OF JAW [None]
